FAERS Safety Report 6744000-5 (Version None)
Quarter: 2010Q2

REPORT INFORMATION
  Report Type: 
  Country: None (occurrence: None)
  Receive Date: 20100527
  Receipt Date: 20100524
  Transmission Date: 20101027
  Serious: Yes (Hospitalization)
  Sender: FDA-Public Use
  Company Number: A0739824A

PATIENT
  Age: 46 Year
  Sex: Male
  Weight: 60.5 kg

DRUGS (3)
  1. ELTROMBOPAG [Suspect]
     Indication: THROMBOCYTOPENIA
     Dosage: 25MG PER DAY
     Route: 048
     Dates: start: 20080225, end: 20080311
  2. PEG-INTRON [Suspect]
     Dosage: 120UG WEEKLY
     Route: 058
     Dates: start: 20080311
  3. REBETOL [Suspect]
     Dosage: 800MG PER DAY
     Route: 048
     Dates: start: 20080311

REACTIONS (2)
  - NAUSEA [None]
  - VOMITING [None]
